FAERS Safety Report 25612758 (Version 1)
Quarter: 2025Q3

REPORT INFORMATION
  Report Type: Spontaneous
  Country: US (occurrence: US)
  Receive Date: 20250728
  Receipt Date: 20250728
  Transmission Date: 20251020
  Serious: No
  Sender: ELI LILLY AND COMPANY
  Company Number: US-ELI_LILLY_AND_COMPANY-US202507023894

PATIENT
  Age: 39 Year
  Sex: Female

DRUGS (8)
  1. MOUNJARO [Suspect]
     Active Substance: TIRZEPATIDE
     Indication: Weight control
     Route: 065
     Dates: start: 202504
  2. MOUNJARO [Suspect]
     Active Substance: TIRZEPATIDE
     Indication: Weight control
     Route: 065
     Dates: start: 202504
  3. MOUNJARO [Suspect]
     Active Substance: TIRZEPATIDE
     Indication: Weight control
     Route: 065
     Dates: start: 202504
  4. MOUNJARO [Suspect]
     Active Substance: TIRZEPATIDE
     Indication: Weight control
     Route: 065
     Dates: start: 202504
  5. MOUNJARO [Suspect]
     Active Substance: TIRZEPATIDE
     Route: 065
  6. MOUNJARO [Suspect]
     Active Substance: TIRZEPATIDE
     Route: 065
  7. MOUNJARO [Suspect]
     Active Substance: TIRZEPATIDE
     Route: 065
  8. MOUNJARO [Suspect]
     Active Substance: TIRZEPATIDE
     Route: 065

REACTIONS (2)
  - Accidental underdose [Unknown]
  - Off label use [Unknown]
